FAERS Safety Report 8864451 (Version 1)
Quarter: 2012Q4

REPORT INFORMATION
  Report Type: 
  Country: US (occurrence: US)
  Receive Date: 20121024
  Receipt Date: 20121024
  Transmission Date: 20130627
  Serious: No
  Sender: FDA-Public Use
  Company Number: US-AMGEN-USASP2011067181

PATIENT
  Sex: Female
  Weight: 77.1 kg

DRUGS (14)
  1. ENBREL [Suspect]
     Indication: PRODUCT USED FOR UNKNOWN INDICATION
     Dosage: 50 mg, qwk
     Route: 058
  2. PAXIL CR [Concomitant]
     Dosage: 12.5 mg, UNK
     Route: 048
  3. TOPAMAX [Concomitant]
     Dosage: 25 mg, UNK
     Route: 048
  4. DEPAKOTE ER [Concomitant]
     Dosage: 500 mg, UNK
     Route: 048
  5. NASONEX [Concomitant]
     Dosage: 50 mug, ac
     Route: 045
  6. PREVACID [Concomitant]
     Dosage: 15 mg, UNK
     Route: 048
  7. CRESTOR [Concomitant]
     Dosage: 10 mg, UNK
     Route: 048
  8. OXYCODONE [Concomitant]
     Dosage: 5 mg, UNK
     Route: 048
  9. VITAMIN D3 [Concomitant]
     Dosage: 1000 IU, UNK
     Route: 048
  10. DICLOFENAC [Concomitant]
     Dosage: 25 mg, UNK
     Route: 048
  11. BAYER ASPIRIN [Concomitant]
     Dosage: 81 mg, UNK
     Route: 048
  12. ZETIA [Concomitant]
     Dosage: 10 mg, UNK
     Route: 048
  13. OXYCONTIN [Concomitant]
     Dosage: 10 mg, UNK
     Route: 048
  14. LEVOTHYROXIN [Concomitant]
     Dosage: 100 mug, UNK
     Route: 048

REACTIONS (1)
  - Injection site bruising [Unknown]
